FAERS Safety Report 13754586 (Version 1)
Quarter: 2017Q3

REPORT INFORMATION
  Report Type: Spontaneous
  Country: US (occurrence: US)
  Receive Date: 20170714
  Receipt Date: 20170714
  Transmission Date: 20171127
  Serious: Yes (Other)
  Sender: FDA-Public Use
  Company Number: US-AMGEN-USASP2017105139

PATIENT
  Age: 73 Year
  Sex: Female

DRUGS (1)
  1. PROLIA [Suspect]
     Active Substance: DENOSUMAB
     Indication: OSTEOPOROSIS
     Dosage: UNK UNK, Q6MO
     Route: 065

REACTIONS (12)
  - Rib fracture [Unknown]
  - Nerve injury [Unknown]
  - Intervertebral disc protrusion [Unknown]
  - Injury [Unknown]
  - Fracture [Unknown]
  - Spinal column injury [Unknown]
  - Dysstasia [Unknown]
  - Joint arthroplasty [Unknown]
  - Fall [Unknown]
  - Spinal fracture [Unknown]
  - Rehabilitation therapy [Unknown]
  - Pain [Unknown]

NARRATIVE: CASE EVENT DATE: 20170108
